FAERS Safety Report 14120932 (Version 2)
Quarter: 2017Q4

REPORT INFORMATION
  Report Type: Other
  Country: IT (occurrence: IT)
  Receive Date: 20171024
  Receipt Date: 20171102
  Transmission Date: 20180321
  Serious: Yes (Other)
  Sender: FDA-Public Use
  Company Number: IT-CELLTRION INC.-2017IT014110

PATIENT

DRUGS (1)
  1. REMSIMA [Suspect]
     Active Substance: INFLIXIMAB
     Indication: PSORIASIS
     Dosage: 300 MG, CYCLIC
     Route: 042
     Dates: start: 20170908, end: 20170908

REACTIONS (1)
  - Arthritis [Not Recovered/Not Resolved]
